FAERS Safety Report 4352581-4 (Version None)
Quarter: 2004Q2

REPORT INFORMATION
  Report Type: 
  Country: None (occurrence: None)
  Receive Date: 20040427
  Receipt Date: 20040316
  Transmission Date: 20050107
  Serious: No
  Sender: FDA-Public Use
  Company Number: WAES 0403USA01481

PATIENT
  Age: 49 Year
  Sex: Male

DRUGS (5)
  1. EMEND [Suspect]
     Dosage: PO
     Route: 048
     Dates: start: 20040101
  2. LEXAPRO [Concomitant]
  3. ZOFRAN [Concomitant]
  4. VITMINS (UNSPECIFIED) [Concomitant]
  5. WARFARIN SODIUM [Concomitant]

REACTIONS (1)
  - INTERNATIONAL NORMALISED RATIO ABNORMAL [None]
